FAERS Safety Report 11293603 (Version 1)
Quarter: 2015Q3

REPORT INFORMATION
  Report Type: Spontaneous
  Country: IL (occurrence: IL)
  Receive Date: 20150722
  Receipt Date: 20150722
  Transmission Date: 20151125
  Serious: Yes (Death, Hospitalization, Other)
  Sender: FDA-Public Use
  Company Number: IL-SHIRE-IL201508369

PATIENT
  Sex: Male

DRUGS (4)
  1. VPRIV [Suspect]
     Active Substance: VELAGLUCERASE ALFA
     Indication: PRODUCT USED FOR UNKNOWN INDICATION
     Dosage: 8400 IU, OTHER (TOTAL PER MONTH)
     Route: 041
  2. VPRIV [Suspect]
     Active Substance: VELAGLUCERASE ALFA
     Dosage: UNKNOWN UNITS,   1X/2WKS, (8400 UNITS MONTHLY TOTAL),  1X/2WKS
  3. VPRIV [Suspect]
     Active Substance: VELAGLUCERASE ALFA
     Dosage: UNK
  4. VPRIV [Suspect]
     Active Substance: VELAGLUCERASE ALFA
     Dosage: UNKNOWN,  1X/WEEK, TOTAL MONTHLY VPRIV INFUSED 8400 UNITS.

REACTIONS (3)
  - Condition aggravated [Fatal]
  - Inappropriate schedule of drug administration [Recovered/Resolved]
  - Colorectal cancer [Fatal]
